FAERS Safety Report 9304785 (Version 1)
Quarter: 2013Q2

REPORT INFORMATION
  Report Type: Spontaneous
  Country: GB (occurrence: GB)
  Receive Date: 20130523
  Receipt Date: 20130523
  Transmission Date: 20140414
  Serious: Yes (Other)
  Sender: FDA-Public Use
  Company Number: GB-009507513-1305GBR010440

PATIENT
  Age: 67 Year
  Sex: Female
  Weight: 68.9 kg

DRUGS (6)
  1. FOSAMAX [Suspect]
     Indication: OSTEOPOROSIS PROPHYLAXIS
     Dosage: 70 MG, 1/1 WEEKS
     Route: 048
     Dates: start: 20040225
  2. HUMIRA [Suspect]
     Indication: RHEUMATOID ARTHRITIS
     Dosage: 40 MG, 1/2 WEEKS
     Route: 058
     Dates: start: 20110314, end: 20120703
  3. ADCAL-D3 [Concomitant]
  4. UBIDECARENONE [Concomitant]
     Dosage: 100 MG, UNK
  5. OMEGA-3 MARINE TRIGLYCERIDES [Concomitant]
  6. ACETAMINOPHEN [Concomitant]

REACTIONS (3)
  - Eosinophilia [Recovered/Resolved]
  - Glossitis [Recovered/Resolved with Sequelae]
  - Squamous cell carcinoma of the tongue [Recovered/Resolved with Sequelae]
